FAERS Safety Report 12677022 (Version 7)
Quarter: 2022Q1

REPORT INFORMATION
  Report Type: Spontaneous
  Country: CA (occurrence: None)
  Receive Date: 20160823
  Receipt Date: 20220303
  Transmission Date: 20220423
  Serious: Yes (Other)
  Sender: FDA-Public Use
  Company Number: CA-ROCHE-1660064

PATIENT
  Sex: Female

DRUGS (29)
  1. RITUXAN [Suspect]
     Active Substance: RITUXIMAB
     Indication: Rheumatoid arthritis
     Route: 042
  2. NAPROSYN [Suspect]
     Active Substance: NAPROXEN
     Indication: Rheumatoid arthritis
     Dosage: 1 TABLET 2 TIMES DAILY
     Route: 048
     Dates: start: 20140613
  3. NAPROSYN [Suspect]
     Active Substance: NAPROXEN
     Dosage: 1 TABLET 2 TIMES DAILY
     Route: 048
     Dates: start: 20140925
  4. NAPROSYN [Suspect]
     Active Substance: NAPROXEN
     Route: 048
     Dates: start: 20130702
  5. NAPROSYN [Suspect]
     Active Substance: NAPROXEN
     Route: 048
  6. NAPROSYN [Suspect]
     Active Substance: NAPROXEN
     Route: 048
  7. ACTEMRA [Suspect]
     Active Substance: TOCILIZUMAB
     Indication: Product used for unknown indication
     Route: 042
     Dates: start: 201301, end: 201310
  8. METHOTREXATE [Suspect]
     Active Substance: METHOTREXATE
     Indication: Rheumatoid arthritis
     Dosage: EVERY WEDNESDAY
     Route: 048
     Dates: start: 20140613
  9. METHOTREXATE [Suspect]
     Active Substance: METHOTREXATE
     Dosage: EVERY TUESDAY 5 TABLET ONCE A WEEK
     Route: 048
     Dates: start: 20131015
  10. METHOTREXATE [Suspect]
     Active Substance: METHOTREXATE
     Route: 048
     Dates: start: 200910, end: 201205
  11. ENBREL [Suspect]
     Active Substance: ETANERCEPT
     Indication: Rheumatoid arthritis
     Route: 058
  12. ARAVA [Suspect]
     Active Substance: LEFLUNOMIDE
     Indication: Rheumatoid arthritis
     Route: 065
     Dates: start: 200910, end: 201302
  13. ARAVA [Suspect]
     Active Substance: LEFLUNOMIDE
     Dosage: THERAPY DURATION: 10 MONTHS
     Route: 065
  14. IBUPROFEN [Suspect]
     Active Substance: IBUPROFEN
     Indication: Rheumatoid arthritis
     Dosage: 1 TABLET 3 TIMES DAILY
     Route: 048
     Dates: start: 20140514
  15. IBUPROFEN [Suspect]
     Active Substance: IBUPROFEN
     Indication: Arthralgia
     Route: 065
  16. IBUPROFEN [Suspect]
     Active Substance: IBUPROFEN
     Dosage: 10 MONTHS
     Route: 065
  17. HUMIRA [Suspect]
     Active Substance: ADALIMUMAB
     Indication: Rheumatoid arthritis
     Dosage: THERAPY DURATION: 8 MONTHS
     Route: 058
  18. HUMIRA [Suspect]
     Active Substance: ADALIMUMAB
     Route: 065
     Dates: start: 201001, end: 201008
  19. RABEPRAZOLE SODIUM [Suspect]
     Active Substance: RABEPRAZOLE SODIUM
     Indication: Product used for unknown indication
     Dosage: DELAYED RELEASE
     Route: 048
     Dates: start: 20140613
  20. RABEPRAZOLE SODIUM [Suspect]
     Active Substance: RABEPRAZOLE SODIUM
     Route: 048
     Dates: start: 20131015
  21. METHYLPREDNISOLONE [Suspect]
     Active Substance: METHYLPREDNISOLONE
     Indication: Product used for unknown indication
     Dosage: 40MG V/L ONCE INJECTION 1ML
     Route: 048
     Dates: start: 20140409
  22. FOLIC ACID [Suspect]
     Active Substance: FOLIC ACID
     Indication: Product used for unknown indication
     Dosage: EVERY FRIDAY
     Route: 048
     Dates: start: 20140613
  23. FOLIC ACID [Suspect]
     Active Substance: FOLIC ACID
     Dosage: EVERY WEDNESDAY 1 TABLET A WEEK
     Route: 048
     Dates: start: 20131015
  24. IBUPROFEN [Suspect]
     Active Substance: IBUPROFEN
     Indication: Rheumatoid arthritis
     Route: 048
  25. IBUPROFEN [Suspect]
     Active Substance: IBUPROFEN
     Indication: Arthralgia
  26. FOLIC ACID [Suspect]
     Active Substance: FOLIC ACID
     Indication: Product used for unknown indication
     Route: 048
  27. LEFLUNOMIDE [Suspect]
     Active Substance: LEFLUNOMIDE
     Indication: Rheumatoid arthritis
     Route: 065
  28. RABEPRAZOLE SODIUM [Concomitant]
     Active Substance: RABEPRAZOLE SODIUM
  29. XELJANZ [Concomitant]
     Active Substance: TOFACITINIB CITRATE

REACTIONS (20)
  - Condition aggravated [Not Recovered/Not Resolved]
  - Erythema [Not Recovered/Not Resolved]
  - Mouth ulceration [Not Recovered/Not Resolved]
  - Nasal ulcer [Not Recovered/Not Resolved]
  - Obesity [Not Recovered/Not Resolved]
  - Pain [Not Recovered/Not Resolved]
  - Stress [Not Recovered/Not Resolved]
  - Swelling [Not Recovered/Not Resolved]
  - Drug ineffective [Unknown]
  - Blood alkaline phosphatase increased [Not Recovered/Not Resolved]
  - Therapeutic product effect decreased [Not Recovered/Not Resolved]
  - Drug hypersensitivity [Not Recovered/Not Resolved]
  - Rheumatoid arthritis [Not Recovered/Not Resolved]
  - Hypersensitivity [Not Recovered/Not Resolved]
  - Pneumonia [Not Recovered/Not Resolved]
  - Joint swelling [Not Recovered/Not Resolved]
  - C-reactive protein increased [Not Recovered/Not Resolved]
  - Therapeutic response decreased [Unknown]
  - Drug hypersensitivity [Unknown]
  - Drug ineffective [Unknown]
